FAERS Safety Report 7403982-9 (Version None)
Quarter: 2011Q2

REPORT INFORMATION
  Report Type: 
  Country: None (occurrence: None)
  Receive Date: 20110408
  Receipt Date: 20101014
  Transmission Date: 20111010
  Serious: No
  Sender: FDA-Public Use
  Company Number: US-NOVOPROD-316952

PATIENT
  Age: 44 Year
  Sex: Female
  Weight: 68.027 kg

DRUGS (3)
  1. NOVOLOG [Concomitant]
     Indication: TYPE 1 DIABETES MELLITUS
     Dosage: SLIDING SCALE
     Route: 058
     Dates: start: 20000101
  2. GLUCAGEN [Suspect]
     Indication: BLOOD GLUCOSE DECREASED
     Dosage: UNK
     Route: 058
  3. LEVEMIR [Concomitant]
     Indication: TYPE 1 DIABETES MELLITUS
     Dosage: 14 U, QD
     Route: 058
     Dates: start: 20100101

REACTIONS (2)
  - HYPOGLYCAEMIA [None]
  - DEVICE MALFUNCTION [None]
